FAERS Safety Report 8599460-4 (Version None)
Quarter: 2012Q3

REPORT INFORMATION
  Report Type: 
  Country: None (occurrence: None)
  Receive Date: 20120806
  Receipt Date: 20120718
  Transmission Date: 20120928
  Serious: Yes (Hospitalization, Other)
  Sender: FDA-Public Use
  Company Number: 2012S1000355

PATIENT
  Age: 60 Year
  Sex: Female

DRUGS (7)
  1. STRONTIUM [Concomitant]
  2. RANELATE [Concomitant]
  3. PREGABALIN [Concomitant]
  4. PANTOPRAZOLE [Concomitant]
  5. CALCIUM PIDOLATE [Concomitant]
  6. CELESTONE [Suspect]
     Indication: PRODUCT USED FOR UNKNOWN INDICATION
     Dosage: 12 MG; IM
     Route: 030
  7. ALIPZA (PITAVASTATIN) [Suspect]
     Indication: HYPERCHOLESTEROLAEMIA
     Dosage: 2 MG;1X;PO
     Route: 048
     Dates: start: 20111201, end: 20120201

REACTIONS (2)
  - DRUG-INDUCED LIVER INJURY [None]
  - HEPATITIS ACUTE [None]
